FAERS Safety Report 7591895-1 (Version None)
Quarter: 2011Q3

REPORT INFORMATION
  Report Type: 
  Country: None (occurrence: None)
  Receive Date: 20110701
  Receipt Date: 20110701
  Transmission Date: 20111222
  Serious: Yes (Other)
  Sender: FDA-Public Use
  Company Number: None

PATIENT
  Sex: Female

DRUGS (1)
  1. FORTEO [Suspect]
     Indication: OSTEOPOROSIS
     Dosage: 20MCG DAIL SUBCUTANEOUS
     Route: 058
     Dates: start: 20100601, end: 20110501

REACTIONS (2)
  - BLOOD CALCIUM INCREASED [None]
  - ARTHRALGIA [None]
